FAERS Safety Report 5072984-2 (Version None)
Quarter: 2006Q3

REPORT INFORMATION
  Report Type: 
  Country: None (occurrence: None)
  Receive Date: 20060807
  Receipt Date: 20060712
  Transmission Date: 20061208
  Serious: Yes (Death, Hospitalization)
  Sender: FDA-Public Use
  Company Number: CA-ABBOTT-06P-028-0337964-00

PATIENT
  Age: 15 Year
  Sex: Male

DRUGS (11)
  1. VALPROIC ACID [Suspect]
     Indication: ATTENTION DEFICIT/HYPERACTIVITY DISORDER
     Route: 065
  2. VALPROIC ACID [Suspect]
     Indication: LEARNING DISORDER
  3. VALPROIC ACID [Suspect]
     Indication: ABNORMAL BEHAVIOUR
  4. VALPROIC ACID [Suspect]
     Indication: AFFECTIVE DISORDER
  5. DEXEDRINE [Concomitant]
     Indication: ATTENTION DEFICIT/HYPERACTIVITY DISORDER
     Route: 065
  6. DEXEDRINE [Concomitant]
     Indication: LEARNING DISORDER
  7. DEXEDRINE [Concomitant]
     Indication: ABNORMAL BEHAVIOUR
  8. RISPERIDONE [Concomitant]
     Indication: LEARNING DISORDER
     Route: 065
  9. RISPERIDONE [Concomitant]
     Indication: ATTENTION DEFICIT/HYPERACTIVITY DISORDER
  10. RISPERIDONE [Concomitant]
     Indication: ABNORMAL BEHAVIOUR
  11. CYPROHEPTADINE HCL [Concomitant]
     Indication: DRUG USE FOR UNKNOWN INDICATION
     Route: 065

REACTIONS (6)
  - BRAIN HERNIATION [None]
  - BRAIN OEDEMA [None]
  - DIABETES INSIPIDUS [None]
  - HYPERAMMONAEMIA [None]
  - HYPERTENSION [None]
  - STATUS EPILEPTICUS [None]
